FAERS Safety Report 10067936 (Version 2)
Quarter: 2014Q2

REPORT INFORMATION
  Report Type: Spontaneous
  Country: US (occurrence: US)
  Receive Date: 20140409
  Receipt Date: 20140424
  Transmission Date: 20141212
  Serious: Yes (Other)
  Sender: FDA-Public Use
  Company Number: US-009507513-1404USA004310

PATIENT
  Age: 57 Year
  Sex: Female

DRUGS (6)
  1. JANUMET [Suspect]
     Indication: DIABETES MELLITUS
     Dosage: START DATE REPORTED AS BEFORE 2012,DOSE REPORTED AS 50/1000, TWICE A DAY
     Route: 048
     Dates: end: 20140321
  2. LANTUS [Concomitant]
  3. LIPITOR [Concomitant]
  4. PLAVIX [Concomitant]
  5. NORVASC [Concomitant]
  6. EDARBYCLOR [Concomitant]

REACTIONS (1)
  - Thyroid cancer [Unknown]
